FAERS Safety Report 4539516-6 (Version None)
Quarter: 2004Q4

REPORT INFORMATION
  Report Type: 
  Country: None (occurrence: None)
  Receive Date: 20041222
  Receipt Date: 20041215
  Transmission Date: 20050328
  Serious: Yes (Hospitalization)
  Sender: FDA-Public Use
  Company Number: 209915

PATIENT
  Age: 45 Year
  Sex: Male
  Weight: 92.1 kg

DRUGS (4)
  1. XOLAIR [Suspect]
     Indication: ASTHMA
     Dosage: 300 MG, Q2W, SUBCUTANEOUS
     Route: 058
     Dates: start: 20040225, end: 20040714
  2. ADVAIR (SALMETEROL XINAFOATE, FLUTICASONE PROPIONATE) [Concomitant]
  3. SINGULAIR [Concomitant]
  4. FLONASE NASAL SPRAY (FLUTICASONE PROPIONATE) [Concomitant]

REACTIONS (24)
  - ALLERGIC GRANULOMATOUS ANGIITIS [None]
  - ASTHMA [None]
  - AUTOIMMUNE DISORDER [None]
  - BRONCHOPULMONARY ASPERGILLOSIS [None]
  - CARCINOMA [None]
  - CHOLELITHIASIS [None]
  - CHRONIC OBSTRUCTIVE AIRWAYS DISEASE [None]
  - CONDITION AGGRAVATED [None]
  - CRYPTOGENIC ORGANIZING PNEUMONIA [None]
  - DEHYDRATION [None]
  - DERMATOMYOSITIS [None]
  - EOSINOPHILIC PNEUMONIA [None]
  - HAEMATURIA [None]
  - INTERSTITIAL LUNG DISEASE [None]
  - NASAL POLYPS [None]
  - NEUROPATHY PERIPHERAL [None]
  - OEDEMA PERIPHERAL [None]
  - PNEUMONIA VIRAL [None]
  - POLYMYOSITIS [None]
  - RENAL FAILURE [None]
  - RHABDOMYOLYSIS [None]
  - SARCOIDOSIS [None]
  - URINARY TRACT INFECTION [None]
  - VASCULITIS [None]
